FAERS Safety Report 12714380 (Version 3)
Quarter: 2018Q4

REPORT INFORMATION
  Report Type: Spontaneous
  Country: US (occurrence: US)
  Receive Date: 20160905
  Receipt Date: 20181105
  Transmission Date: 20190204
  Serious: No
  Sender: FDA-Public Use
  Company Number: US-JAZZ-2016-US-009079

PATIENT
  Sex: Female

DRUGS (32)
  1. XYREM [Suspect]
     Active Substance: SODIUM OXYBATE
     Dosage: 3 G, FOR THIRD DOSE
     Route: 048
     Dates: start: 201504, end: 2015
  2. CARTIA XT [Concomitant]
     Active Substance: DILTIAZEM HYDROCHLORIDE
  3. VYVANSE [Concomitant]
     Active Substance: LISDEXAMFETAMINE DIMESYLATE
  4. XYZAL [Concomitant]
     Active Substance: LEVOCETIRIZINE DIHYDROCHLORIDE
  5. XYREM [Suspect]
     Active Substance: SODIUM OXYBATE
     Dosage: 3 G, FOR THIRD DOSE
     Route: 048
     Dates: start: 201603
  6. TRIAMCINOLONE [Concomitant]
     Active Substance: TRIAMCINOLONE
  7. IBUPROFEN. [Concomitant]
     Active Substance: IBUPROFEN
  8. ADVAIR HFA [Concomitant]
     Active Substance: FLUTICASONE PROPIONATE\SALMETEROL XINAFOATE
  9. DUONEB [Concomitant]
     Active Substance: ALBUTEROL SULFATE\IPRATROPIUM BROMIDE
  10. XYREM [Suspect]
     Active Substance: SODIUM OXYBATE
     Dosage: 2 G, FOR FIRST DOSE
     Route: 048
     Dates: start: 201603
  11. MUPIROCIN. [Concomitant]
     Active Substance: MUPIROCIN
  12. UTOPIC [Concomitant]
     Active Substance: UREA
  13. MEDROL [Concomitant]
     Active Substance: METHYLPREDNISOLONE
  14. DULERA [Concomitant]
     Active Substance: FORMOTEROL FUMARATE DIHYDRATE\MOMETASONE FUROATE
  15. THEOPHYLLINE [Concomitant]
     Active Substance: THEOPHYLLINE ANHYDROUS
  16. XYREM [Suspect]
     Active Substance: SODIUM OXYBATE
     Indication: CATAPLEXY
     Dosage: DOSE ADJUSTMENTS
     Route: 048
  17. MULTIVITAMINS [Concomitant]
     Active Substance: VITAMINS
  18. VITAMIN D3 [Concomitant]
     Active Substance: CHOLECALCIFEROL
  19. BENADRYL ALLERGY [Concomitant]
     Active Substance: DIPHENHYDRAMINE HYDROCHLORIDE
  20. RELPAX [Concomitant]
     Active Substance: ELETRIPTAN HYDROBROMIDE
     Dosage: 40 MG, UNK
  21. XYREM [Suspect]
     Active Substance: SODIUM OXYBATE
     Dosage: 2 G, FOR FIRST DOSE
     Route: 048
     Dates: start: 201504, end: 2015
  22. XYREM [Suspect]
     Active Substance: SODIUM OXYBATE
     Dosage: 3.25 G, FOR SECOND DOSE
     Route: 048
     Dates: start: 201504, end: 2015
  23. XYREM [Suspect]
     Active Substance: SODIUM OXYBATE
     Dosage: 3.25 G, FOR SECOND DOSE
     Route: 048
     Dates: start: 201603
  24. GABAPENTIN. [Concomitant]
     Active Substance: GABAPENTIN
  25. ALBUTEROL HFA [Concomitant]
     Active Substance: ALBUTEROL SULFATE
  26. XYREM [Suspect]
     Active Substance: SODIUM OXYBATE
     Indication: NARCOLEPSY
     Dosage: 2.25 G, BID
     Route: 048
     Dates: start: 201307, end: 201308
  27. VITAMIN B COMPLEX [Concomitant]
     Active Substance: CYANOCOBALAMIN\DEXPANTHENOL\NIACINAMIDE\PYRIDOXINE HYDROCHLORIDE\RIBOFLAVIN 5^-PHOSPHATE SODIUM\THIAMINE HYDROCHLORIDE\VITAMIN B COMPLEX
  28. PANTOPRAZOLE [Concomitant]
     Active Substance: PANTOPRAZOLE
  29. QNASL [Concomitant]
     Active Substance: BECLOMETHASONE DIPROPIONATE
  30. EPIPEN [Concomitant]
     Active Substance: EPINEPHRINE
  31. RELPAX [Concomitant]
     Active Substance: ELETRIPTAN HYDROBROMIDE
     Dosage: 20 MG, UNK
  32. SINGULAIR [Concomitant]
     Active Substance: MONTELUKAST SODIUM

REACTIONS (3)
  - Feeling hot [Not Recovered/Not Resolved]
  - Pre-existing condition improved [Unknown]
  - Psoriasis [Recovering/Resolving]
